FAERS Safety Report 19834471 (Version 1)
Quarter: 2021Q3

REPORT INFORMATION
  Report Type: Report from Study
  Country: BR (occurrence: BR)
  Receive Date: 20210915
  Receipt Date: 20210915
  Transmission Date: 20211014
  Serious: Yes (Hospitalization)
  Sender: FDA-Public Use
  Company Number: BR-ROCHE-2906456

PATIENT
  Age: 59 Year
  Sex: Male
  Weight: 89.8 kg

DRUGS (28)
  1. SINVASTATINA [Concomitant]
     Active Substance: SIMVASTATIN
     Route: 048
     Dates: start: 2014
  2. METHYLPREDNISOLONE. [Concomitant]
     Active Substance: METHYLPREDNISOLONE
     Route: 042
     Dates: start: 20190822, end: 20190822
  3. METHYLPREDNISOLONE. [Concomitant]
     Active Substance: METHYLPREDNISOLONE
     Route: 042
     Dates: start: 20201223, end: 20201223
  4. METHYLPREDNISOLONE. [Concomitant]
     Active Substance: METHYLPREDNISOLONE
     Route: 042
     Dates: start: 20210618, end: 20210618
  5. METHYLPREDNISOLONE. [Concomitant]
     Active Substance: METHYLPREDNISOLONE
     Route: 042
     Dates: start: 20200130, end: 20200130
  6. ALLEGRA [Concomitant]
     Active Substance: FEXOFENADINE HYDROCHLORIDE
     Route: 048
     Dates: start: 20190307, end: 20190307
  7. DIPIRON [Concomitant]
     Dosage: 1 OTHER
     Route: 042
     Dates: start: 20201223, end: 20201223
  8. FEXOFENADINE [Concomitant]
     Active Substance: FEXOFENADINE HYDROCHLORIDE
     Indication: PREMEDICATION
     Route: 048
     Dates: start: 20190822, end: 20190822
  9. FEXOFENADINE [Concomitant]
     Active Substance: FEXOFENADINE HYDROCHLORIDE
     Route: 048
     Dates: start: 20210618, end: 20210618
  10. ALLEGRA [Concomitant]
     Active Substance: FEXOFENADINE HYDROCHLORIDE
     Route: 048
     Dates: start: 20190221, end: 20190221
  11. FEXOFENADINE [Concomitant]
     Active Substance: FEXOFENADINE HYDROCHLORIDE
     Route: 048
     Dates: start: 20200716, end: 20200716
  12. CEFTRIAXONE. [Concomitant]
     Active Substance: CEFTRIAXONE
     Route: 042
     Dates: start: 20210903
  13. COMBODART [Concomitant]
     Active Substance: DUTASTERIDE\TAMSULOSIN
     Dosage: 1 TABLET
     Route: 048
     Dates: start: 201905
  14. METHYLPREDNISOLONE. [Concomitant]
     Active Substance: METHYLPREDNISOLONE
     Indication: PREMEDICATION
     Route: 042
     Dates: start: 20190221, end: 20190221
  15. METHYLPREDNISOLONE. [Concomitant]
     Active Substance: METHYLPREDNISOLONE
     Route: 042
     Dates: start: 20200716, end: 20200716
  16. OCRELIZUMAB. [Suspect]
     Active Substance: OCRELIZUMAB
     Indication: PROGRESSIVE MULTIPLE SCLEROSIS
     Dosage: DATE OF MOST RECENT DOSE OF OCRELIZUMAB PRIOR TO THIS SAE ONSET:17/JUN/2021??INITIAL DOSE OF TWO 300
     Route: 042
     Dates: start: 20190221
  17. DIPIRON [Concomitant]
     Indication: PREMEDICATION
     Dosage: 1 OTHER
     Dates: start: 20190221, end: 20190221
  18. FEXOFENADINE [Concomitant]
     Active Substance: FEXOFENADINE HYDROCHLORIDE
     Route: 048
     Dates: start: 20200130, end: 20200130
  19. ASTRAZENECA VACCINE (UNK INGREDIENTS) [Concomitant]
     Indication: PROPHYLAXIS
     Dosage: 1 OTHER
     Route: 030
     Dates: start: 20210424, end: 20210424
  20. ENOXAPARIN [Concomitant]
     Active Substance: ENOXAPARIN
     Route: 058
     Dates: start: 20210904
  21. DIPIRON [Concomitant]
     Route: 042
     Dates: start: 20190307, end: 20190307
  22. DIPIRON [Concomitant]
     Route: 042
     Dates: start: 20190822, end: 20190822
  23. DIPIRON [Concomitant]
     Dosage: 1 OTHER
     Route: 042
     Dates: start: 20200130, end: 20200130
  24. FEXOFENADINE [Concomitant]
     Active Substance: FEXOFENADINE HYDROCHLORIDE
     Route: 048
     Dates: start: 20201223, end: 20201223
  25. DIOSMIN [Concomitant]
     Active Substance: DIOSMIN
     Dosage: 1 OTHER
     Route: 061
     Dates: start: 20210123, end: 202104
  26. METHYLPREDNISOLONE. [Concomitant]
     Active Substance: METHYLPREDNISOLONE
     Route: 042
     Dates: start: 20190307, end: 20190307
  27. DIPIRON [Concomitant]
     Dosage: 1 OTHER
     Route: 042
     Dates: start: 20200716, end: 20200716
  28. DIPIRON [Concomitant]
     Dosage: 1 OTHER
     Route: 042
     Dates: start: 20210618, end: 20210618

REACTIONS (1)
  - Pneumonia [Recovering/Resolving]

NARRATIVE: CASE EVENT DATE: 20210902
